FAERS Safety Report 8193805-5 (Version None)
Quarter: 2012Q1

REPORT INFORMATION
  Report Type: 
  Country: None (occurrence: None)
  Receive Date: 20120308
  Receipt Date: 20111209
  Transmission Date: 20120608
  Serious: Yes (Death, Hospitalization)
  Sender: FDA-Public Use
  Company Number: PHHO2011CA021889

PATIENT
  Sex: Female

DRUGS (14)
  1. CYCLOSPORINE [Suspect]
     Indication: RENAL TRANSPLANT
     Dosage: 125 MG, QD
     Route: 048
     Dates: start: 20070226
  2. PREDNISOLONE [Suspect]
     Indication: RENAL TRANSPLANT
  3. KETOROLAC TROMETHAMINE [Concomitant]
     Dosage: UNK
     Dates: start: 20110407
  4. AMLODIPINE BESYLATE [Concomitant]
     Dosage: UNK
     Dates: start: 20110331
  5. VITAMIN D [Concomitant]
     Dosage: UNK
     Dates: start: 20110307
  6. TYLENOL W/ CODEINE [Concomitant]
  7. OXYCODONE HYDROCHLORIDE [Concomitant]
  8. OMEPRAZOLE [Concomitant]
     Dosage: UNK
     Dates: start: 20110331
  9. FUROSEMIDE [Concomitant]
     Dosage: UNK
     Dates: start: 20110331
  10. TOBRADEX [Concomitant]
     Dosage: UNK
     Dates: start: 20110318
  11. NOVOLIN 70/30 [Concomitant]
     Dosage: UNK
     Dates: start: 20110513
  12. MULTIPLE VITAMINS [Concomitant]
     Dosage: UNK
     Dates: start: 20110307
  13. MYCOPHENOLATE MOFETIL (CELLCEPT) [Suspect]
     Indication: RENAL TRANSPLANT
     Dosage: 2 DF, 2/1 DAY
     Route: 048
  14. CALCIUM CARBONATE [Concomitant]
     Dosage: UNK
     Dates: start: 20110331

REACTIONS (4)
  - INTESTINAL ISCHAEMIA [None]
  - PERIPHERAL ISCHAEMIA [None]
  - GANGRENE [None]
  - LOCALISED INFECTION [None]
